FAERS Safety Report 16469347 (Version 2)
Quarter: 2019Q2

REPORT INFORMATION
  Report Type: Spontaneous
  Country: CN (occurrence: CN)
  Receive Date: 20190624
  Receipt Date: 20190624
  Transmission Date: 20190711
  Serious: Yes (Other)
  Sender: FDA-Public Use
  Company Number: CN-BAYER-2019-112281

PATIENT
  Age: 67 Year
  Sex: Male

DRUGS (3)
  1. NEXAVAR [Suspect]
     Active Substance: SORAFENIB
     Indication: HEPATIC CANCER
     Dosage: 400 MG, BID
     Route: 048
     Dates: start: 20180624, end: 20180701
  2. NEXAVAR [Suspect]
     Active Substance: SORAFENIB
     Indication: HEPATIC CANCER
     Dosage: 200 MG, BID
     Route: 048
     Dates: start: 20180709, end: 20180712
  3. LACTULOSE. [Concomitant]
     Active Substance: LACTULOSE
     Dosage: CATHARSIS TREATMENT

REACTIONS (2)
  - Hepatic encephalopathy [None]
  - Hepatic encephalopathy [None]

NARRATIVE: CASE EVENT DATE: 20180701
